FAERS Safety Report 16384636 (Version 5)
Quarter: 2019Q3

REPORT INFORMATION
  Report Type: Spontaneous
  Country: JP (occurrence: JP)
  Receive Date: 20190603
  Receipt Date: 20190822
  Transmission Date: 20191004
  Serious: Yes (Death)
  Sender: FDA-Public Use
  Company Number: JP-JNJFOC-20190544374

PATIENT
  Age: 44 Year
  Sex: Male
  Weight: 47 kg

DRUGS (19)
  1. AKINETON [Concomitant]
     Active Substance: BIPERIDEN HYDROCHLORIDE
     Dosage: AT BEDTIME
     Route: 048
     Dates: start: 20180926, end: 20181010
  2. HIRNAMIN [Concomitant]
     Active Substance: LEVOMEPROMAZINE
     Indication: SLEEP DISORDER
     Dosage: AT BEDTIME
     Route: 048
     Dates: end: 20190312
  3. DEPAKENE-R [Concomitant]
     Active Substance: VALPROATE SODIUM
     Indication: SCHIZOAFFECTIVE DISORDER
     Dosage: AFTER DINNER
     Route: 048
     Dates: end: 20180704
  4. AROTINOLOL HYDROCHLORIDE [Concomitant]
     Active Substance: AROTINOLOL HYDROCHLORIDE
     Indication: TREMOR
     Dosage: AFTER DINNER
     Route: 048
     Dates: end: 20180822
  5. AKINETON [Concomitant]
     Active Substance: BIPERIDEN HYDROCHLORIDE
     Dosage: AT BEDTIME
     Route: 048
     Dates: end: 20180925
  6. SODIUM VALPROATE [Concomitant]
     Active Substance: VALPROATE SODIUM
     Indication: SCHIZOAFFECTIVE DISORDER
     Route: 048
  7. SODIUM VALPROATE [Concomitant]
     Active Substance: VALPROATE SODIUM
     Dosage: GRANULATED POWDER, AFTER DINNER
     Route: 048
     Dates: start: 20180704
  8. ESTAZOLAM. [Concomitant]
     Active Substance: ESTAZOLAM
     Indication: SLEEP DISORDER
     Route: 048
  9. ABILIFY [Concomitant]
     Active Substance: ARIPIPRAZOLE
     Indication: SCHIZOPHRENIA
     Route: 030
     Dates: end: 20190509
  10. HIRNAMIN [Concomitant]
     Active Substance: LEVOMEPROMAZINE
     Dosage: AT BEDTIME
     Route: 048
     Dates: start: 20190313, end: 20190409
  11. ASENAPINE MALEATE [Concomitant]
     Active Substance: ASENAPINE MALEATE
     Dosage: AFTER DINNER
     Route: 060
     Dates: start: 20190410, end: 20190508
  12. BIPERIDEN HYDROCHLORIDE [Concomitant]
     Active Substance: BIPERIDEN HYDROCHLORIDE
     Indication: SLEEP DISORDER
     Route: 048
     Dates: end: 20181010
  13. ASENAPINE MALEATE [Concomitant]
     Active Substance: ASENAPINE MALEATE
     Indication: SCHIZOPHRENIA
     Dosage: AFTER DINNER
     Route: 060
     Dates: end: 20190409
  14. TEGRETOL [Concomitant]
     Active Substance: CARBAMAZEPINE
     Indication: SCHIZOAFFECTIVE DISORDER
     Dosage: AT BEDTIME
     Route: 048
     Dates: end: 20180704
  15. XEPLION [Suspect]
     Active Substance: PALIPERIDONE PALMITATE
     Indication: SCHIZOPHRENIA
     Route: 030
     Dates: end: 20190508
  16. DEPAS [Concomitant]
     Dosage: AT BEDTIME
     Route: 048
  17. BELSOMRA [Concomitant]
     Active Substance: SUVOREXANT
     Indication: SLEEP DISORDER
     Route: 048
  18. BIPERIDEN HYDROCHLORIDE [Concomitant]
     Active Substance: BIPERIDEN HYDROCHLORIDE
     Dosage: AT BEDTIME
     Route: 048
     Dates: start: 20181024
  19. HIRNAMIN [Concomitant]
     Active Substance: LEVOMEPROMAZINE
     Dosage: AT BEDTIME
     Route: 048
     Dates: start: 20190410

REACTIONS (1)
  - Death [Fatal]
